FAERS Safety Report 16106564 (Version 5)
Quarter: 2019Q3

REPORT INFORMATION
  Report Type: Report from Study
  Country: CA (occurrence: CA)
  Receive Date: 20190322
  Receipt Date: 20190708
  Transmission Date: 20191004
  Serious: Yes (Other)
  Sender: FDA-Public Use
  Company Number: PHHY2019CA042048

PATIENT
  Age: 46 Year
  Sex: Male

DRUGS (9)
  1. COSENTYX [Suspect]
     Active Substance: SECUKINUMAB
     Dosage: 300 MG, QMO
     Route: 058
     Dates: start: 20190313
  2. ALEVE [Concomitant]
     Active Substance: NAPROXEN SODIUM
     Indication: PRODUCT USED FOR UNKNOWN INDICATION
     Dosage: UNK UNK, PRN
     Route: 065
  3. SULFASALAZINE. [Concomitant]
     Active Substance: SULFASALAZINE
     Indication: PRODUCT USED FOR UNKNOWN INDICATION
     Route: 065
  4. COSENTYX [Suspect]
     Active Substance: SECUKINUMAB
     Dosage: 300 MG, QMO
     Route: 058
     Dates: start: 201903
  5. COSENTYX [Suspect]
     Active Substance: SECUKINUMAB
     Indication: PSORIATIC ARTHROPATHY
     Dosage: 300 MG, QW
     Route: 058
     Dates: start: 20190213
  6. PREDNISONE. [Concomitant]
     Active Substance: PREDNISONE
     Indication: PRODUCT USED FOR UNKNOWN INDICATION
     Route: 065
  7. COSENTYX [Suspect]
     Active Substance: SECUKINUMAB
     Dosage: 300 MG, QMO
     Route: 058
     Dates: start: 201904
  8. TYLENOL [Concomitant]
     Active Substance: ACETAMINOPHEN
     Indication: PRODUCT USED FOR UNKNOWN INDICATION
     Dosage: UNK UNK, PRN
     Route: 065
  9. NAPROXEN. [Concomitant]
     Active Substance: NAPROXEN
     Indication: PRODUCT USED FOR UNKNOWN INDICATION
     Route: 065

REACTIONS (12)
  - Gait inability [Unknown]
  - Pain in extremity [Unknown]
  - Rectal haemorrhage [Unknown]
  - Localised infection [Unknown]
  - Psoriatic arthropathy [Unknown]
  - Constipation [Unknown]
  - Joint stiffness [Unknown]
  - Arthralgia [Unknown]
  - Peripheral swelling [Unknown]
  - Haematochezia [Unknown]
  - Gangrene [Recovering/Resolving]
  - Joint swelling [Unknown]

NARRATIVE: CASE EVENT DATE: 201902
